FAERS Safety Report 8245288-4 (Version None)
Quarter: 2012Q1

REPORT INFORMATION
  Report Type: 
  Country: None (occurrence: None)
  Receive Date: 20120329
  Receipt Date: 20120322
  Transmission Date: 20120608
  Serious: Yes (Other)
  Sender: FDA-Public Use
  Company Number: CA-ABBOTT-12P-028-0917344-00

PATIENT
  Sex: Male
  Weight: 35.412 kg

DRUGS (1)
  1. HUMIRA [Suspect]
     Indication: CROHN'S DISEASE
     Dosage: 80 MG EOW
     Route: 058
     Dates: start: 20110306

REACTIONS (5)
  - FATIGUE [None]
  - DECREASED APPETITE [None]
  - SMALL INTESTINAL STENOSIS [None]
  - WEIGHT DECREASED [None]
  - ABDOMINAL PAIN [None]
